FAERS Safety Report 8723636 (Version 3)
Quarter: 2012Q4

REPORT INFORMATION
  Report Type: 
  Country: JP (occurrence: JP)
  Receive Date: 20120815
  Receipt Date: 20120923
  Transmission Date: 20130627
  Serious: Yes (Hospitalization)
  Sender: FDA-Public Use
  Company Number: JP-BIOGENIDEC-2012BI029900

PATIENT
  Age: 57 Year
  Sex: Female

DRUGS (9)
  1. AVONEX [Suspect]
     Indication: RELAPSING-REMITTING MULTIPLE SCLEROSIS
     Route: 030
     Dates: start: 20100311
  2. AVONEX [Suspect]
     Indication: RELAPSING-REMITTING MULTIPLE SCLEROSIS
     Route: 030
  3. LIPITOR [Concomitant]
     Indication: MALAISE
     Route: 048
     Dates: start: 20100310, end: 20100501
  4. RINPRAL [Concomitant]
     Indication: MULTIPLE SCLEROSIS
     Route: 048
     Dates: start: 20100310, end: 20100501
  5. MUCOSTA [Concomitant]
     Indication: PROPHYLAXIS
     Route: 048
     Dates: start: 20100310, end: 20100501
  6. VOLTAREN [Concomitant]
     Indication: PROPHYLAXIS
     Route: 048
     Dates: start: 20100310, end: 20100501
  7. NAIXAN [Concomitant]
     Indication: PROPHYLAXIS
     Route: 048
     Dates: start: 20100311, end: 20100313
  8. NAIXAN [Concomitant]
     Indication: PROPHYLAXIS
     Route: 048
     Dates: start: 20100327, end: 20100331
  9. MYSLEE [Concomitant]
     Indication: MALAISE
     Route: 048
     Dates: start: 20100327, end: 20100401

REACTIONS (2)
  - Type 1 diabetes mellitus [Recovered/Resolved]
  - Multiple sclerosis relapse [Recovered/Resolved]
